FAERS Safety Report 5165215-6 (Version None)
Quarter: 2006Q4

REPORT INFORMATION
  Report Type: 
  Country: None (occurrence: None)
  Receive Date: 20061124
  Receipt Date: 20061114
  Transmission Date: 20070319
  Serious: Yes (Other)
  Sender: FDA-Public Use
  Company Number: 2006138356

PATIENT
  Age: 2 Year
  Sex: Female

DRUGS (4)
  1. METHYLPEDNISOLONE SODIUM SUCCINATE [Suspect]
     Indication: IDIOPATHIC THROMBOCYTOPENIC PURPURA
  2. IMMUNE GLOBULIN INTRAVENOUS (HUMAN) [Suspect]
     Dosage: 0.8 G/KG/ DOSE (1 IN 15 D)
  3. AZATHIOPRINE [Suspect]
     Dosage: 2 MG/KG/DAY
  4. CYCLOSPORINE [Suspect]
     Dosage: 8 MG/KG/DAY

REACTIONS (3)
  - DRUG INEFFECTIVE [None]
  - PLATELET COUNT DECREASED [None]
  - PURPURA [None]
